FAERS Safety Report 6135967-7 (Version None)
Quarter: 2009Q1

REPORT INFORMATION
  Report Type: 
  Country: None (occurrence: None)
  Receive Date: 20090329
  Receipt Date: 20080520
  Transmission Date: 20090719
  Serious: No
  Sender: FDA-Public Use
  Company Number: US-BAUSCH-2008BL002260

PATIENT
  Age: 69 Year
  Sex: Female

DRUGS (2)
  1. LOTEMAX [Suspect]
     Indication: POSTOPERATIVE CARE
     Route: 047
     Dates: start: 20080429, end: 20080519
  2. MULTI-VITAMINS [Concomitant]
     Indication: VITAMIN SUPPLEMENTATION

REACTIONS (1)
  - RASH [None]
